FAERS Safety Report 7903600-7 (Version None)
Quarter: 2011Q4

REPORT INFORMATION
  Report Type: 
  Country: None (occurrence: None)
  Receive Date: 20111109
  Receipt Date: 20111027
  Transmission Date: 20120403
  Serious: Yes (Hospitalization, Other)
  Sender: FDA-Public Use
  Company Number: US-ELI_LILLY_AND_COMPANY-US201106000896

PATIENT
  Sex: Female

DRUGS (6)
  1. FORTEO [Suspect]
     Indication: OSTEOPOROSIS
     Dosage: 20 UG, QD
     Dates: start: 20110501
  2. FORTEO [Suspect]
     Dosage: 20 UG, QD
     Dates: end: 20110825
  3. FORTEO [Suspect]
     Dosage: 20 UG, QD
     Dates: start: 20111026
  4. REQUIP [Concomitant]
  5. FORTEO [Suspect]
     Dosage: 20 UG, QD
  6. ATENOLOL [Concomitant]

REACTIONS (12)
  - SLEEP DISORDER DUE TO A GENERAL MEDICAL CONDITION [None]
  - BREAST CANCER [None]
  - INJECTION SITE ERYTHEMA [None]
  - BREAST INDURATION [None]
  - INSOMNIA [None]
  - BREAST TENDERNESS [None]
  - BREAST SWELLING [None]
  - SKIN STRIAE [None]
  - DISCOMFORT [None]
  - MEDICATION ERROR [None]
  - BREAST DISCOMFORT [None]
  - INJECTION SITE HAEMATOMA [None]
